FAERS Safety Report 16953727 (Version 2)
Quarter: 2019Q4

REPORT INFORMATION
  Report Type: Report from Study
  Country: US (occurrence: US)
  Receive Date: 20191023
  Receipt Date: 20191126
  Transmission Date: 20200122
  Serious: Yes (Hospitalization)
  Sender: FDA-Public Use
  Company Number: US-ACTELION-A-US2019-197170

PATIENT
  Age: 46 Year
  Sex: Male

DRUGS (9)
  1. ALPRAZOLAM. [Concomitant]
     Active Substance: ALPRAZOLAM
     Dosage: 0.5 MG
  2. OXYCODONE WITH APAP [Concomitant]
     Active Substance: ACETAMINOPHEN\OXYCODONE HYDROCHLORIDE
     Dosage: 5-325 MG
  3. LASIX [Concomitant]
     Active Substance: FUROSEMIDE
     Dosage: 80 MG, QD
     Route: 048
     Dates: start: 20190709
  4. FENTANYL. [Concomitant]
     Active Substance: FENTANYL
     Dosage: 75 MCG, TID
     Dates: start: 20180804
  5. TOPROL XL [Concomitant]
     Active Substance: METOPROLOL SUCCINATE
     Dosage: 50 MG, QAM
     Route: 048
  6. LODINE [Concomitant]
     Active Substance: ETODOLAC
     Dosage: 360 MG, QD
     Route: 048
  7. LINZESS [Concomitant]
     Active Substance: LINACLOTIDE
     Dosage: 145 MCG, QAM
     Route: 048
  8. OPSUMIT [Suspect]
     Active Substance: MACITENTAN
     Indication: PULMONARY HYPERTENSION
     Dosage: 10 MG
     Route: 048
     Dates: start: 20171002
  9. METHADONE [Concomitant]
     Active Substance: METHADONE HYDROCHLORIDE
     Dosage: 10 MG

REACTIONS (4)
  - Pyrexia [Recovered/Resolved]
  - Chest pain [Recovered/Resolved]
  - Food poisoning [Recovered/Resolved]
  - Sickle cell anaemia with crisis [Recovered/Resolved]

NARRATIVE: CASE EVENT DATE: 20190930
